FAERS Safety Report 9096272 (Version 1)
Quarter: 2013Q1

REPORT INFORMATION
  Report Type: Spontaneous
  Country: US (occurrence: US)
  Receive Date: 20130207
  Receipt Date: 20130207
  Transmission Date: 20140127
  Serious: Yes (Other)
  Sender: FDA-Public Use
  Company Number: US-PFIZER INC-2013020280

PATIENT
  Age: 71 Year
  Sex: Female
  Weight: 64.4 kg

DRUGS (1)
  1. LYRICA [Suspect]
     Indication: NEUROPATHY PERIPHERAL
     Dosage: 300 MG
     Dates: start: 201210

REACTIONS (4)
  - Weight increased [Unknown]
  - Activities of daily living impaired [Unknown]
  - Dizziness [Unknown]
  - Arthralgia [Unknown]
